FAERS Safety Report 7808317-5 (Version None)
Quarter: 2011Q4

REPORT INFORMATION
  Report Type: 
  Country: None (occurrence: None)
  Receive Date: 20111012
  Receipt Date: 20111004
  Transmission Date: 20120403
  Serious: Yes (Hospitalization)
  Sender: FDA-Public Use
  Company Number: US-BIOGENIDEC-2011BI038007

PATIENT
  Age: 50 Year
  Sex: Female

DRUGS (4)
  1. HIGH BLOOD PRESSURE MEDS (NOS) [Concomitant]
     Indication: HYPERTENSION
  2. DIAZEPAM [Concomitant]
     Indication: MUSCLE SPASMS
  3. DIAZEPAM [Concomitant]
     Indication: BACK DISORDER
  4. AVONEX [Suspect]
     Indication: MULTIPLE SCLEROSIS
     Route: 030
     Dates: start: 20060101, end: 20080101

REACTIONS (1)
  - INFECTION [None]
